FAERS Safety Report 6761822-5 (Version None)
Quarter: 2010Q2

REPORT INFORMATION
  Report Type: 
  Country: None (occurrence: None)
  Receive Date: 20100419
  Receipt Date: 20100409
  Transmission Date: 20101027
  Serious: Yes (Hospitalization, Other)
  Sender: FDA-Public Use
  Company Number: THYM-1001334

PATIENT
  Age: 63 Year
  Sex: Male
  Weight: 85.2 kg

DRUGS (22)
  1. THYMOGLOBULIN [Suspect]
     Indication: STEM CELL TRANSPLANT
     Dosage: 44 MG, ONCE, INTRAVENOUS, 132 MG ONCE, INTRAVENOUS, 176 MG, ONCE, INTRAVENOUS
     Route: 042
     Dates: start: 20090816, end: 20090816
  2. THYMOGLOBULIN [Suspect]
     Indication: STEM CELL TRANSPLANT
     Dosage: 44 MG, ONCE, INTRAVENOUS, 132 MG ONCE, INTRAVENOUS, 176 MG, ONCE, INTRAVENOUS
     Route: 042
     Dates: start: 20090817, end: 20090817
  3. THYMOGLOBULIN [Suspect]
     Indication: STEM CELL TRANSPLANT
     Dosage: 44 MG, ONCE, INTRAVENOUS, 132 MG ONCE, INTRAVENOUS, 176 MG, ONCE, INTRAVENOUS
     Route: 042
     Dates: start: 20090818, end: 20090818
  4. MOZOBIL (PLERIXAFOR) [Concomitant]
  5. GRANULOCYTE COLONY STIMULATING FACTOR [Concomitant]
  6. FLUDARABINE [Concomitant]
  7. BUSULFEX [Concomitant]
  8. AMBIEN [Concomitant]
  9. ATIVAN [Concomitant]
  10. BACLOFEN [Concomitant]
  11. COMPAZINE (PROCHLORPERAZINE MALEATE) [Concomitant]
  12. LEVETIRACETAM [Concomitant]
  13. MEGESTROL ACETATE [Concomitant]
  14. METRONIDAZOLE [Concomitant]
  15. NEXIUM [Concomitant]
  16. PAROXETINE [Concomitant]
  17. PENTAMIDINE ISETHIONATE [Concomitant]
  18. PROPOXYPHENE HCL [Concomitant]
  19. TACROLIMUS [Concomitant]
  20. TOLTERODINE [Concomitant]
  21. VALTREX [Concomitant]
  22. VFEND [Concomitant]

REACTIONS (10)
  - ATELECTASIS [None]
  - BK VIRUS INFECTION [None]
  - CLOSTRIDIAL INFECTION [None]
  - CONFUSIONAL STATE [None]
  - ENCEPHALOPATHY [None]
  - HYPERTENSION [None]
  - INFECTION [None]
  - ORTHOSTATIC HYPOTENSION [None]
  - PNEUMONIA [None]
  - RENAL FAILURE [None]
